FAERS Safety Report 4702485-X (Version None)
Quarter: 2005Q2

REPORT INFORMATION
  Report Type: 
  Country: None (occurrence: None)
  Receive Date: 20050629
  Receipt Date: 20050513
  Transmission Date: 20051028
  Serious: Yes (Other)
  Sender: FDA-Public Use
  Company Number: FR-JNJFOC-20050503906

PATIENT
  Age: 51 Year
  Sex: Female

DRUGS (11)
  1. REMICADE [Suspect]
     Indication: ANKYLOSING SPONDYLITIS
     Dosage: 1 INFUSION
     Route: 042
  2. DEXTROPROPOXYPHENE [Concomitant]
  3. CLONAZEPAM [Concomitant]
     Dosage: 15 DROPS
  4. LEVOTHYROX [Concomitant]
     Dosage: 200UG DAILY FOR 6 DAYS, 300UG ON SUNDAY
  5. CYNOMEL [Concomitant]
  6. RYTHMOL [Concomitant]
  7. LUTERAN [Concomitant]
  8. NON-STEROID ANTI-INFLAMMATORY [Concomitant]
  9. ATARAX [Concomitant]
  10. TELFAST [Concomitant]
  11. STILNOX [Concomitant]
     Route: 065

REACTIONS (3)
  - LEUKOCYTOCLASTIC VASCULITIS [None]
  - MACROCYTOSIS [None]
  - TOXIC SKIN ERUPTION [None]
